FAERS Safety Report 21972577 (Version 1)
Quarter: 2023Q1

REPORT INFORMATION
  Report Type: Spontaneous
  Country: US (occurrence: None)
  Receive Date: 20230208
  Receipt Date: 20230208
  Transmission Date: 20230418
  Serious: Yes (Hospitalization)
  Sender: FDA-Public Use
  Company Number: None

PATIENT
  Age: 58 Year
  Sex: Female
  Weight: 71.67 kg

DRUGS (1)
  1. KETAMINE [Suspect]
     Active Substance: KETAMINE
     Indication: Bipolar disorder
     Dosage: FREQUENCY : DAILY;?
     Route: 002
     Dates: start: 20221204, end: 20230203

REACTIONS (2)
  - Mania [None]
  - Psychotic disorder [None]

NARRATIVE: CASE EVENT DATE: 20230206
